FAERS Safety Report 7528303-2 (Version None)
Quarter: 2011Q2

REPORT INFORMATION
  Report Type: 
  Country: None (occurrence: None)
  Receive Date: 20110607
  Receipt Date: 20100514
  Transmission Date: 20111010
  Serious: No
  Sender: FDA-Public Use
  Company Number: US-ASTRAZENECA-2010SE22268

PATIENT
  Age: 53 Year
  Sex: Female
  Weight: 102.1 kg

DRUGS (3)
  1. OMEPRAZOLE [Suspect]
     Indication: GASTROOESOPHAGEAL REFLUX DISEASE
     Route: 048
     Dates: start: 20090101, end: 20100401
  2. REQUIP [Concomitant]
     Indication: RESTLESS LEGS SYNDROME
  3. DIOVAN [Concomitant]
     Indication: BLOOD PRESSURE

REACTIONS (5)
  - DYSPNOEA [None]
  - GASTROOESOPHAGEAL REFLUX DISEASE [None]
  - DYSPHONIA [None]
  - VOMITING [None]
  - DRUG INEFFECTIVE [None]
